FAERS Safety Report 9597319 (Version 1)
Quarter: 2013Q4

REPORT INFORMATION
  Report Type: Spontaneous
  Country: US (occurrence: US)
  Receive Date: 20131004
  Receipt Date: 20131004
  Transmission Date: 20140711
  Serious: No
  Sender: FDA-Public Use
  Company Number: US-AMGEN-USASP2013018502

PATIENT
  Age: 23 Year
  Sex: Female

DRUGS (3)
  1. ENBREL [Suspect]
     Indication: RHEUMATOID ARTHRITIS
     Dosage: 50 MG, QWK
     Route: 058
     Dates: start: 201302
  2. METHOTREXATE [Concomitant]
     Dosage: 1 G, UNK
  3. FOLIC ACID [Concomitant]
     Dosage: UNK

REACTIONS (4)
  - Infection [Unknown]
  - Injection site reaction [Recovering/Resolving]
  - Injection site pain [Recovering/Resolving]
  - Injection site urticaria [Recovering/Resolving]
